FAERS Safety Report 12524146 (Version 8)
Quarter: 2016Q3

REPORT INFORMATION
  Report Type: Report from Study
  Country: US (occurrence: US)
  Receive Date: 20160704
  Receipt Date: 20160909
  Transmission Date: 20161109
  Serious: Yes (Death, Hospitalization, Other)
  Sender: FDA-Public Use
  Company Number: US-GILEAD-2016-0220315

PATIENT
  Age: 39 Year
  Sex: Female

DRUGS (8)
  1. AMBRISENTAN [Suspect]
     Active Substance: AMBRISENTAN
     Dosage: 5 MG, UNK
     Route: 065
     Dates: start: 201201
  2. FLOLAN [Concomitant]
     Active Substance: EPOPROSTENOL SODIUM
     Dosage: 16 NG/KG/MIN
  3. DIGOXIN. [Concomitant]
     Active Substance: DIGOXIN
  4. REVATIO [Concomitant]
     Active Substance: SILDENAFIL CITRATE
  5. COUMADIN [Concomitant]
     Active Substance: WARFARIN SODIUM
  6. AMBRISENTAN [Suspect]
     Active Substance: AMBRISENTAN
     Indication: PULMONARY ARTERIAL HYPERTENSION
     Dosage: 10 MG, QD
     Route: 048
     Dates: start: 20111117
  7. REMODULIN [Concomitant]
     Active Substance: TREPROSTINIL
  8. LASIX [Concomitant]
     Active Substance: FUROSEMIDE

REACTIONS (7)
  - Right ventricular failure [Fatal]
  - Dyspnoea [Unknown]
  - Fluid retention [Unknown]
  - Chronic kidney disease [Unknown]
  - Cardiac failure congestive [Fatal]
  - Pneumonia [Unknown]
  - Malaise [Unknown]
